FAERS Safety Report 5729657-X (Version None)
Quarter: 2008Q2

REPORT INFORMATION
  Report Type: 
  Country: None (occurrence: None)
  Receive Date: 20080501
  Receipt Date: 20080402
  Transmission Date: 20081010
  Serious: Yes (Hospitalization)
  Sender: FDA-Public Use
  Company Number: US022599

PATIENT
  Age: 63 Year
  Sex: Female

DRUGS (3)
  1. BENDAMUSTINE HCL [Suspect]
     Indication: CHRONIC LYMPHOCYTIC LEUKAEMIA
     Dosage: 80 MG/M2, CYCLIC QD INTRAVENOUS
     Route: 042
     Dates: start: 20080117
  2. BENDAMUSTINE HCL [Suspect]
     Indication: NON-HODGKIN'S LYMPHOMA
     Dosage: 80 MG/M2, CYCLIC QD INTRAVENOUS
     Route: 042
     Dates: start: 20080117
  3. RITUXIMAB [Concomitant]

REACTIONS (4)
  - APHASIA [None]
  - BRAIN OEDEMA [None]
  - CEREBRAL INFARCTION [None]
  - CEREBROVASCULAR ACCIDENT [None]
